APPROVED DRUG PRODUCT: DICLOFENAC POTASSIUM
Active Ingredient: DICLOFENAC POTASSIUM
Strength: 25MG
Dosage Form/Route: CAPSULE;ORAL
Application: A210078 | Product #001 | TE Code: AB
Applicant: ONESOURCE SPECIALTY PTE LTD
Approved: Dec 3, 2019 | RLD: No | RS: No | Type: RX